FAERS Safety Report 8113680-4 (Version None)
Quarter: 2012Q1

REPORT INFORMATION
  Report Type: 
  Country: None (occurrence: None)
  Receive Date: 20120203
  Receipt Date: 20120201
  Transmission Date: 20120608
  Serious: Yes (Other)
  Sender: FDA-Public Use
  Company Number: US-JNJFOC-20120201461

PATIENT
  Age: 67 Year
  Sex: Female
  Weight: 61.24 kg

DRUGS (3)
  1. LOSARTAN POTASSIUM [Concomitant]
     Indication: HYPERTENSION
     Route: 048
  2. XARELTO [Suspect]
     Indication: ATRIAL FIBRILLATION
     Route: 048
     Dates: start: 20120124, end: 20120124
  3. ATENOLOL [Concomitant]
     Indication: ATRIAL FIBRILLATION
     Route: 048

REACTIONS (2)
  - FAECES DISCOLOURED [None]
  - INAPPROPRIATE SCHEDULE OF DRUG ADMINISTRATION [None]
